FAERS Safety Report 12916158 (Version 1)
Quarter: 2016Q4

REPORT INFORMATION
  Report Type: Spontaneous
  Country: None (occurrence: US)
  Receive Date: 20161107
  Receipt Date: 20161107
  Transmission Date: 20170207
  Serious: No
  Sender: FDA-Public Use
  Company Number: None

PATIENT
  Age: 36 Year
  Sex: Female
  Weight: 68 kg

DRUGS (1)
  1. IBUPROFEN 800MG [Suspect]
     Active Substance: IBUPROFEN

REACTIONS (2)
  - Eye swelling [None]
  - Ocular hyperaemia [None]

NARRATIVE: CASE EVENT DATE: 20161101
